FAERS Safety Report 8838341 (Version 1)
Quarter: 2012Q4

REPORT INFORMATION
  Report Type: 
  Country: HR (occurrence: HR)
  Receive Date: 20121012
  Receipt Date: 20121012
  Transmission Date: 20130627
  Serious: Yes (Other)
  Sender: FDA-Public Use
  Company Number: HR-GLAXOSMITHKLINE-B0836771A

PATIENT
  Age: 5 Year
  Sex: Male
  Weight: 21 kg

DRUGS (3)
  1. FLIXOTIDE [Suspect]
     Indication: ALLERGY PROPHYLAXIS
     Route: 055
  2. OMNIC [Concomitant]
     Indication: PRODUCT USED FOR UNKNOWN INDICATION
     Route: 048
  3. VENTOLIN [Concomitant]
     Indication: PRODUCT USED FOR UNKNOWN INDICATION
     Route: 065

REACTIONS (2)
  - Drug dependence [Unknown]
  - Drug ineffective [Unknown]
